FAERS Safety Report 8352539-4 (Version None)
Quarter: 2012Q2

REPORT INFORMATION
  Report Type: 
  Country: None (occurrence: None)
  Receive Date: 20120509
  Receipt Date: 20120424
  Transmission Date: 20120825
  Serious: Yes (Other)
  Sender: FDA-Public Use
  Company Number: 2012AP000736

PATIENT
  Age: 62 Year
  Sex: Male

DRUGS (5)
  1. AMLODIPINE [Concomitant]
  2. BENDROFLUMETHIAZIDE (BENDROFLUMETHIAZIDE) [Concomitant]
  3. ALBUTEROL SULFATE [Concomitant]
  4. RAMIPRIL [Suspect]
     Indication: PRODUCT USED FOR UNKNOWN INDICATION
     Dosage: UNKNOWN
     Dates: start: 20120229, end: 20120305
  5. SIMVASTATIN [Concomitant]

REACTIONS (3)
  - COUGH [None]
  - WHEEZING [None]
  - DYSPNOEA [None]
